FAERS Safety Report 17226875 (Version 1)
Quarter: 2020Q1

REPORT INFORMATION
  Report Type: Spontaneous
  Country: US (occurrence: US)
  Receive Date: 20200102
  Receipt Date: 20200102
  Transmission Date: 20200409
  Serious: No
  Sender: FDA-Public Use
  Company Number: US-HETERO-HET2019US01822

PATIENT
  Age: 74 Year
  Sex: Female
  Weight: 57 kg

DRUGS (1)
  1. OSELTAMIVIR [Suspect]
     Active Substance: OSELTAMIVIR
     Indication: INFLUENZA
     Dosage: 75 MG, T.I.D.( 3 CAPSULES A DAY)
     Route: 065
     Dates: start: 20191218, end: 20191218

REACTIONS (4)
  - Vomiting [Recovered/Resolved]
  - Dizziness [Recovered/Resolved]
  - Diarrhoea [Recovered/Resolved]
  - Nausea [Recovered/Resolved]

NARRATIVE: CASE EVENT DATE: 20191218
